FAERS Safety Report 5267750-9 (Version None)
Quarter: 2007Q1

REPORT INFORMATION
  Report Type: 
  Country: None (occurrence: None)
  Receive Date: 20070316
  Receipt Date: 20070221
  Transmission Date: 20070707
  Serious: Yes (Hospitalization, Other)
  Sender: FDA-Public Use
  Company Number: US-PFIZER INC-2007014517

PATIENT
  Sex: Male
  Weight: 97.5 kg

DRUGS (2)
  1. CELEBREX [Suspect]
     Indication: NECK PAIN
     Route: 048
  2. BEXTRA [Suspect]
     Indication: NECK PAIN
     Route: 048
     Dates: start: 20010319, end: 20020714

REACTIONS (2)
  - CARDIOVASCULAR DISORDER [None]
  - CEREBROVASCULAR ACCIDENT [None]
